FAERS Safety Report 24933269 (Version 1)
Quarter: 2025Q1

REPORT INFORMATION
  Report Type: Spontaneous
  Country: US (occurrence: US)
  Receive Date: 20250206
  Receipt Date: 20250206
  Transmission Date: 20250408
  Serious: No
  Sender: ALKEM
  Company Number: US-ALKEM LABORATORIES LIMITED-US-ALKEM-2024-17978

PATIENT
  Sex: Male

DRUGS (1)
  1. GABAPENTIN [Suspect]
     Active Substance: GABAPENTIN
     Indication: Anxiety disorder
     Dosage: 1050 MILLIGRAM, QD
     Route: 065

REACTIONS (1)
  - Dyskinesia [Recovered/Resolved]
